FAERS Safety Report 15399606 (Version 2)
Quarter: 2018Q4

REPORT INFORMATION
  Report Type: Report from Study
  Country: US (occurrence: US)
  Receive Date: 20180918
  Receipt Date: 20181016
  Transmission Date: 20190204
  Serious: No
  Sender: FDA-Public Use
  Company Number: US-AMGEN-USASL2018064864

PATIENT
  Age: 67 Year
  Sex: Female

DRUGS (4)
  1. NEUPOGEN [Suspect]
     Active Substance: FILGRASTIM
     Indication: BRONCHIAL NEOPLASM
     Dosage: UNK
     Route: 065
  2. NEULASTA [Suspect]
     Active Substance: PEGFILGRASTIM
     Indication: LUNG NEOPLASM MALIGNANT
  3. NEULASTA [Suspect]
     Active Substance: PEGFILGRASTIM
     Indication: BRONCHIAL NEOPLASM
     Dosage: UNK
     Route: 065
  4. NEUPOGEN [Suspect]
     Active Substance: FILGRASTIM
     Indication: LUNG NEOPLASM MALIGNANT

REACTIONS (1)
  - Off label use [Unknown]
